FAERS Safety Report 6427879-6 (Version None)
Quarter: 2009Q4

REPORT INFORMATION
  Report Type: 
  Country: None (occurrence: None)
  Receive Date: 20091104
  Receipt Date: 20091104
  Transmission Date: 20100525
  Serious: No
  Sender: FDA-Public Use
  Company Number: None

PATIENT
  Age: 53 Year
  Sex: Male
  Weight: 79.8 kg

DRUGS (1)
  1. BUPROPION HCL [Suspect]
     Indication: DEPRESSION
     Dosage: 100 MG BID PO
     Route: 048
     Dates: start: 20091020, end: 20091020

REACTIONS (6)
  - ERYTHEMA [None]
  - HEART RATE INCREASED [None]
  - PRURITUS [None]
  - PYREXIA [None]
  - RASH [None]
  - URTICARIA [None]
